FAERS Safety Report 16361549 (Version 8)
Quarter: 2021Q1

REPORT INFORMATION
  Report Type: Spontaneous
  Country: US (occurrence: US)
  Receive Date: 20190528
  Receipt Date: 20210205
  Transmission Date: 20210419
  Serious: No
  Sender: FDA-Public Use
  Company Number: US-PFIZER INC-2019216426

PATIENT
  Age: 70 Year
  Sex: Female
  Weight: 81.65 kg

DRUGS (8)
  1. NALBUPHINE HYDROCHLORIDE. [Suspect]
     Active Substance: NALBUPHINE HYDROCHLORIDE
     Indication: NEURALGIA
     Dosage: 20MG EVERY 4 HRS (10 ML STRENGTH) AS NEEDED
     Route: 030
     Dates: start: 1999
  2. NALBUPHINE HYDROCHLORIDE. [Suspect]
     Active Substance: NALBUPHINE HYDROCHLORIDE
     Indication: NEURALGIA
     Dosage: 120 MG, DAILY
     Dates: start: 201908, end: 201908
  3. NALBUPHINE HYDROCHLORIDE. [Suspect]
     Active Substance: NALBUPHINE HYDROCHLORIDE
     Dosage: UNK
  4. NALBUPHINE HYDROCHLORIDE. [Suspect]
     Active Substance: NALBUPHINE HYDROCHLORIDE
     Dosage: 6 INJECTIONS TO 5 THEN 4 THEN 3 AND NOW DOWN TO 2 INJECTIONS DAILY
  5. NALBUPHINE HYDROCHLORIDE. [Suspect]
     Active Substance: NALBUPHINE HYDROCHLORIDE
     Dosage: UNK
  6. NALBUPHINE HYDROCHLORIDE. [Suspect]
     Active Substance: NALBUPHINE HYDROCHLORIDE
     Indication: NEURALGIA
     Dosage: UNK
     Dates: start: 1995
  7. NALBUPHINE HYDROCHLORIDE. [Suspect]
     Active Substance: NALBUPHINE HYDROCHLORIDE
     Dosage: 20 MG, (1ML 4?6 TIMES PER DAY)(20MG/ML 1 INJECTION EVERY 4 HOURS)
  8. NALBUPHINE HYDROCHLORIDE. [Suspect]
     Active Substance: NALBUPHINE HYDROCHLORIDE
     Indication: NEURALGIA
     Dosage: 20 MG  4?6 TIMES PER DAY
     Dates: start: 2019

REACTIONS (7)
  - Product administration error [Unknown]
  - Arthritis [Unknown]
  - Hypoaesthesia [Unknown]
  - Intentional product use issue [Unknown]
  - Drug ineffective for unapproved indication [Not Recovered/Not Resolved]
  - Off label use [Not Recovered/Not Resolved]
  - Product storage error [Unknown]

NARRATIVE: CASE EVENT DATE: 201906
